FAERS Safety Report 6032759-4 (Version None)
Quarter: 2009Q1

REPORT INFORMATION
  Report Type: 
  Country: None (occurrence: None)
  Receive Date: 20090109
  Receipt Date: 20090105
  Transmission Date: 20090719
  Serious: Yes (Death, Other)
  Sender: FDA-Public Use
  Company Number: US-ROCHE-595052

PATIENT
  Sex: Male
  Weight: 69.9 kg

DRUGS (4)
  1. CAPECITABINE [Suspect]
     Route: 065
     Dates: start: 20060706, end: 20080416
  2. CARDURA [Concomitant]
  3. NORTRIPTYLINE HCL [Concomitant]
  4. ALPRAZOLAM [Concomitant]

REACTIONS (4)
  - ANAEMIA [None]
  - CEREBROVASCULAR ACCIDENT [None]
  - DISEASE PROGRESSION [None]
  - HAEMORRHAGE [None]
